FAERS Safety Report 14131814 (Version 1)
Quarter: 2017Q4

REPORT INFORMATION
  Report Type: Report from Study
  Country: None (occurrence: US)
  Receive Date: 20171026
  Receipt Date: 20171026
  Transmission Date: 20180321
  Serious: Yes (Other)
  Sender: FDA-Public Use
  Company Number: US-ABBVIE-17K-163-2136173-00

PATIENT
  Sex: Male

DRUGS (1)
  1. HUMIRA [Suspect]
     Active Substance: ADALIMUMAB
     Indication: CROHN^S DISEASE
     Route: 058

REACTIONS (7)
  - Complication associated with device [Unknown]
  - Pain [Unknown]
  - Musculoskeletal pain [Unknown]
  - Insomnia [Unknown]
  - Hernia [Unknown]
  - Weight loss poor [Unknown]
  - Viral upper respiratory tract infection [Unknown]
